FAERS Safety Report 5768199-2 (Version None)
Quarter: 2008Q2

REPORT INFORMATION
  Report Type: 
  Country: None (occurrence: None)
  Receive Date: 20080612
  Receipt Date: 20080606
  Transmission Date: 20081010
  Serious: Yes (Life-Threatening)
  Sender: FDA-Public Use
  Company Number: CL-MERCK-0803CHL00002

PATIENT
  Age: 62 Year
  Sex: Female
  Weight: 102 kg

DRUGS (1)
  1. VYTORIN [Suspect]
     Indication: HYPERCHOLESTEROLAEMIA
     Route: 048
     Dates: start: 20070401, end: 20071001

REACTIONS (1)
  - CHEMICAL POISONING [None]
